FAERS Safety Report 7450129-9 (Version None)
Quarter: 2011Q2

REPORT INFORMATION
  Report Type: 
  Country: None (occurrence: None)
  Receive Date: 20110428
  Receipt Date: 20110428
  Transmission Date: 20111010
  Serious: Yes (Hospitalization)
  Sender: FDA-Public Use
  Company Number: None

PATIENT
  Age: 75 Year
  Sex: Male
  Weight: 89.8122 kg

DRUGS (8)
  1. ARANESP [Suspect]
     Indication: ANAEMIA
     Dosage: 100MCG UNDER THE SKIN EVERY TWO WEEKS
     Dates: start: 20100301, end: 20101201
  2. NITROGLYCERIN [Concomitant]
  3. FUROSEMIDE [Concomitant]
  4. AMLODIPINE BESYLATE [Concomitant]
  5. CARVEDILOL [Concomitant]
  6. PRANDIN [Concomitant]
  7. RENVELA [Concomitant]
  8. DOXAZOSIN MESYLATE [Concomitant]

REACTIONS (1)
  - LOCALISED INFECTION [None]
